FAERS Safety Report 8079031-9 (Version None)
Quarter: 2012Q1

REPORT INFORMATION
  Report Type: 
  Country: None (occurrence: None)
  Receive Date: 20120128
  Receipt Date: 20110705
  Transmission Date: 20120608
  Serious: No
  Sender: FDA-Public Use
  Company Number: US-ABBOTT-11P-163-0836636-00

PATIENT
  Sex: Female
  Weight: 61.29 kg

DRUGS (5)
  1. OXYCODONE HCL [Concomitant]
     Indication: PAIN
  2. PAXIL [Concomitant]
     Indication: DEPRESSION
  3. HUMIRA [Suspect]
     Indication: RHEUMATOID ARTHRITIS
     Dates: start: 20090101
  4. ALPRAZOLAM [Concomitant]
     Indication: ANXIETY
  5. MORPHINE [Concomitant]
     Indication: PAIN

REACTIONS (1)
  - FATIGUE [None]
